FAERS Safety Report 17056310 (Version 6)
Quarter: 2021Q2

REPORT INFORMATION
  Report Type: Other
  Country: US (occurrence: US)
  Receive Date: 20191121
  Receipt Date: 20210510
  Transmission Date: 20210716
  Serious: Yes (Hospitalization, Other)
  Sender: FDA-Public Use
  Company Number: US-ROCHE-2354487

PATIENT
  Age: 38 Year
  Sex: Female
  Weight: 90.35 kg

DRUGS (17)
  1. OCREVUS [Suspect]
     Active Substance: OCRELIZUMAB
     Indication: RELAPSING-REMITTING MULTIPLE SCLEROSIS
     Route: 042
     Dates: start: 20180614
  2. OCREVUS [Suspect]
     Active Substance: OCRELIZUMAB
     Route: 042
     Dates: start: 201712
  3. VITAMIN D3 [Concomitant]
     Active Substance: CHOLECALCIFEROL
     Route: 048
     Dates: start: 2014
  4. MAGNESIUM [Concomitant]
     Active Substance: MAGNESIUM
     Route: 048
  5. OCREVUS [Suspect]
     Active Substance: OCRELIZUMAB
     Route: 065
  6. OCREVUS [Suspect]
     Active Substance: OCRELIZUMAB
     Route: 042
     Dates: start: 20180605
  7. GABAPENTIN. [Concomitant]
     Active Substance: GABAPENTIN
     Indication: NEURALGIA
     Dosage: 300 MG IN MORNING AND 600 MG IN EVENING
     Route: 048
  8. ASPIRIN. [Concomitant]
     Active Substance: ASPIRIN
     Dosage: THERAPY ONGOING YES
     Route: 048
     Dates: start: 202006
  9. VITAMIN D3 [Concomitant]
     Active Substance: CHOLECALCIFEROL
     Indication: VITAMIN D DEFICIENCY
     Route: 048
  10. ESTROGEN [Concomitant]
     Active Substance: ESTROGENS
     Indication: HYSTERECTOMY
     Route: 048
     Dates: start: 201902
  11. ONDANSETRON [Concomitant]
     Active Substance: ONDANSETRON
     Indication: MIGRAINE
     Dosage: THERAPY ONGOING YES
     Route: 048
     Dates: start: 2017
  12. OCREVUS [Suspect]
     Active Substance: OCRELIZUMAB
     Route: 065
  13. AMITRIPTYLINE [Concomitant]
     Active Substance: AMITRIPTYLINE
     Indication: MIGRAINE
     Route: 048
     Dates: start: 2017
  14. BACLOFEN. [Concomitant]
     Active Substance: BACLOFEN
     Indication: MUSCLE SPASMS
     Dosage: ONGOING YES, 5 MG IN MORNING AND 15 MG IN EVENING
     Route: 048
     Dates: start: 201906
  15. ATORVASTATIN [Concomitant]
     Active Substance: ATORVASTATIN
     Indication: BLOOD CHOLESTEROL INCREASED
     Dosage: THERAPY ONGOING YES
     Route: 048
  16. OCREVUS [Suspect]
     Active Substance: OCRELIZUMAB
     Dosage: TREATMENT DATES: 21/JUN/2019 AND 21/DEC/2019
     Route: 042
     Dates: start: 201812
  17. ESTRADIOL. [Concomitant]
     Active Substance: ESTRADIOL
     Indication: HYSTERECTOMY
     Route: 048
     Dates: start: 201901

REACTIONS (16)
  - Throat irritation [Recovered/Resolved]
  - Feeling abnormal [Not Recovered/Not Resolved]
  - Pruritus [Recovered/Resolved]
  - Blood cholesterol increased [Not Recovered/Not Resolved]
  - Blood pressure increased [Recovered/Resolved]
  - Lethargy [Not Recovered/Not Resolved]
  - Memory impairment [Not Recovered/Not Resolved]
  - Neck pain [Unknown]
  - Swollen tongue [Not Recovered/Not Resolved]
  - Uterine disorder [Recovered/Resolved]
  - Heart rate increased [Unknown]
  - Multiple sclerosis [Recovered/Resolved]
  - Chest pain [Not Recovered/Not Resolved]
  - Headache [Recovered/Resolved]
  - Hypertension [Not Recovered/Not Resolved]
  - Asthenia [Not Recovered/Not Resolved]

NARRATIVE: CASE EVENT DATE: 201812
